FAERS Safety Report 11619994 (Version 2)
Quarter: 2015Q4

REPORT INFORMATION
  Report Type: Spontaneous
  Country: US (occurrence: US)
  Receive Date: 20151012
  Receipt Date: 20151218
  Transmission Date: 20160304
  Serious: Yes (Death, Hospitalization, Other)
  Sender: FDA-Public Use
  Company Number: PHEH2015US020003

PATIENT
  Sex: Female

DRUGS (1)
  1. FEMARA [Suspect]
     Active Substance: LETROZOLE
     Indication: BREAST CANCER METASTATIC
     Route: 065

REACTIONS (7)
  - Pneumothorax [Unknown]
  - Malignant pleural effusion [Unknown]
  - Respiratory failure [Unknown]
  - Sepsis [Unknown]
  - Breast cancer metastatic [Fatal]
  - Wound haemorrhage [Unknown]
  - Malignant neoplasm progression [Fatal]
